FAERS Safety Report 24412043 (Version 1)
Quarter: 2024Q4

REPORT INFORMATION
  Report Type: Spontaneous
  Country: US (occurrence: None)
  Receive Date: 20241007
  Receipt Date: 20241007
  Transmission Date: 20250115
  Serious: Yes (unspecified)
  Sender: Public
  Company Number: None

PATIENT
  Age: 73 Year
  Sex: Male
  Weight: 97 kg

DRUGS (1)
  1. RITUXIMAB-PVVR [Suspect]
     Active Substance: RITUXIMAB-PVVR
     Indication: Rheumatoid arthritis
     Dosage: FREQUENCY : ONCE;?
     Route: 042
     Dates: start: 20240611, end: 20240611

REACTIONS (5)
  - Tachycardia [None]
  - Hypertension [None]
  - Hyperthermia [None]
  - Chills [None]
  - Chills [None]

NARRATIVE: CASE EVENT DATE: 20240611
